FAERS Safety Report 9581854 (Version 2)
Quarter: 2013Q4

REPORT INFORMATION
  Report Type: Report from Study
  Country: US (occurrence: US)
  Receive Date: 20131002
  Receipt Date: 20131122
  Transmission Date: 20140711
  Serious: Yes (Death, Disabling)
  Sender: FDA-Public Use
  Company Number: US-US-EMD SERONO, INC.-7240824

PATIENT
  Age: 63 Year
  Sex: Male

DRUGS (1)
  1. REBIF [Suspect]
     Indication: MULTIPLE SCLEROSIS
     Dates: start: 20070507, end: 20130603

REACTIONS (5)
  - Small intestinal obstruction [Fatal]
  - Large intestinal obstruction [Fatal]
  - Sepsis [Fatal]
  - Mobility decreased [Unknown]
  - Asthenia [Unknown]
